FAERS Safety Report 7355864-9 (Version None)
Quarter: 2011Q1

REPORT INFORMATION
  Report Type: 
  Country: None (occurrence: None)
  Receive Date: 20110316
  Receipt Date: 20110307
  Transmission Date: 20110831
  Serious: Yes (Other)
  Sender: FDA-Public Use
  Company Number: US-JNJFOC-2010029050

PATIENT
  Age: 55 Year
  Sex: Female
  Weight: 92.99 kg

DRUGS (5)
  1. TYLENOL PM [Concomitant]
     Indication: SLEEP DISORDER THERAPY
     Route: 065
  2. MULTI-SYMPTOM ROLAIDS PLUS ANTI-GAS SOFTCHEWS FRUIT [Suspect]
     Indication: GASTROOESOPHAGEAL REFLUX DISEASE
     Dosage: ONE SOFTCHEW
     Route: 048
     Dates: end: 20101209
  3. TYLENOL PM [Concomitant]
     Indication: PAIN
     Route: 065
  4. IBUPROFEN [Concomitant]
     Indication: BACK PAIN
     Route: 065
  5. IBUPROFEN [Concomitant]
     Indication: MUSCULOSKELETAL PAIN
     Route: 065

REACTIONS (3)
  - PRODUCT QUALITY ISSUE [None]
  - PAIN [None]
  - TOOTH FRACTURE [None]
